FAERS Safety Report 21201490 (Version 1)
Quarter: 2022Q3

REPORT INFORMATION
  Report Type: Spontaneous
  Country: US (occurrence: None)
  Receive Date: 20220810
  Receipt Date: 20220810
  Transmission Date: 20221026
  Serious: Yes (Disabling)
  Sender: FDA-Public Use
  Company Number: None

PATIENT
  Age: 86 Year
  Sex: Female
  Weight: 60.78 kg

DRUGS (1)
  1. AMLODIPINE BESYLATE [Suspect]
     Active Substance: AMLODIPINE BESYLATE
     Indication: Blood pressure measurement
     Dosage: OTHER FREQUENCY : 1 X IN MORNING;?
     Route: 048
     Dates: start: 2021, end: 20220705

REACTIONS (3)
  - Joint swelling [None]
  - Skin discolouration [None]
  - Gait disturbance [None]
